FAERS Safety Report 13433646 (Version 1)
Quarter: 2017Q2

REPORT INFORMATION
  Report Type: Report from Study
  Country: US (occurrence: US)
  Receive Date: 20170412
  Receipt Date: 20170412
  Transmission Date: 20170830
  Serious: Yes (Other)
  Sender: FDA-Public Use
  Company Number: US-BAYER-2017-059665

PATIENT
  Age: 67 Year
  Sex: Female

DRUGS (1)
  1. STIVARGA [Suspect]
     Active Substance: REGORAFENIB
     Indication: COLORECTAL CANCER
     Dosage: 160 MG, DAILY
     Route: 048
     Dates: start: 20170321, end: 20170330

REACTIONS (11)
  - Blood count abnormal [None]
  - Asthenia [None]
  - Fatigue [None]
  - Nausea [None]
  - Weight bearing difficulty [None]
  - Epistaxis [None]
  - Hypophagia [None]
  - Pain in extremity [None]
  - Odynophagia [None]
  - Abdominal pain [None]
  - Decreased appetite [Not Recovered/Not Resolved]

NARRATIVE: CASE EVENT DATE: 201703
